FAERS Safety Report 5380529-2 (Version None)
Quarter: 2007Q3

REPORT INFORMATION
  Report Type: 
  Country: None (occurrence: None)
  Receive Date: 20070703
  Receipt Date: 20070618
  Transmission Date: 20080115
  Serious: Yes (Other)
  Sender: FDA-Public Use
  Company Number: S07-GRC-02200-01

PATIENT
  Age: 94 Year
  Sex: Female
  Weight: 50 kg

DRUGS (5)
  1. MEMANTINE HCL [Suspect]
     Dosage: 20 MG QD PO
     Route: 048
     Dates: start: 20060101, end: 20070220
  2. MEMANTINE HCL [Suspect]
     Dosage: 20 MG QD PO
     Route: 048
     Dates: start: 20070314, end: 20070426
  3. SEROQUEL [Concomitant]
  4. SALOSPIR (ACETYLSALICYLIC ACID) [Concomitant]
  5. THYROHORMONE (LEVOTHYROXINE SODIUM) [Concomitant]

REACTIONS (4)
  - ALANINE AMINOTRANSFERASE INCREASED [None]
  - ASPARTATE AMINOTRANSFERASE INCREASED [None]
  - BLOOD ALKALINE PHOSPHATASE INCREASED [None]
  - GAMMA-GLUTAMYLTRANSFERASE INCREASED [None]
